FAERS Safety Report 7450017-8 (Version None)
Quarter: 2011Q2

REPORT INFORMATION
  Report Type: 
  Country: None (occurrence: None)
  Receive Date: 20110502
  Receipt Date: 20090122
  Transmission Date: 20111010
  Serious: Yes (Death, Hospitalization, Other)
  Sender: FDA-Public Use
  Company Number: US-BAYER-200912314NA

PATIENT
  Age: 46 Year
  Sex: Female
  Weight: 81.633 kg

DRUGS (14)
  1. METOPROLOL SUCCINATE [Concomitant]
     Dosage: 50 MG, QD
     Route: 048
  2. ZINACEF [Concomitant]
     Dosage: 1.5 G, UNK
     Route: 042
     Dates: start: 20050920
  3. ZOCOR [Concomitant]
     Route: 048
  4. FRESH FROZEN PLASMA [Concomitant]
     Dosage: 5 U, UNK
     Dates: start: 20050920
  5. AMIODARONE [Concomitant]
     Dosage: 400 MG, TID
     Route: 048
  6. VANCOMYCIN [Concomitant]
     Dosage: 1 G, UNK
     Route: 048
  7. NITROGLYCERIN [Concomitant]
     Dosage: 70 CC
     Dates: start: 20050920
  8. ACETYLSALICYLIC ACID SRT [Concomitant]
     Dosage: 81 MG, QD
     Route: 048
  9. RED BLOOD CELLS [Concomitant]
     Dosage: 8 U, UNK
     Dates: start: 20050920
  10. MANNITOL [Concomitant]
     Dosage: 300 ML, UNK
     Route: 042
     Dates: start: 20050920
  11. TRASYLOL [Suspect]
     Indication: AORTIC VALVE REPLACEMENT
     Dosage: 200 ML, UNK
     Route: 042
     Dates: start: 20050920, end: 20050920
  12. HEPARIN [Concomitant]
     Dosage: UNK
     Route: 042
     Dates: start: 20050920
  13. TRASYLOL [Suspect]
     Dosage: 50 ML/HR INFUSION RATE
     Route: 042
     Dates: start: 20050920, end: 20050920
  14. LEVOPHED [Concomitant]
     Dosage: UNK
     Route: 042
     Dates: start: 20050920

REACTIONS (13)
  - EMOTIONAL DISTRESS [None]
  - STRESS [None]
  - RENAL INJURY [None]
  - ANXIETY [None]
  - PAIN [None]
  - INJURY [None]
  - RENAL IMPAIRMENT [None]
  - FEAR [None]
  - DEATH [None]
  - MULTI-ORGAN FAILURE [None]
  - RENAL FAILURE [None]
  - UNEVALUABLE EVENT [None]
  - ANHEDONIA [None]
